FAERS Safety Report 21292226 (Version 1)
Quarter: 2022Q3

REPORT INFORMATION
  Report Type: Spontaneous
  Country: JP (occurrence: JP)
  Receive Date: 20220905
  Receipt Date: 20220905
  Transmission Date: 20221027
  Serious: Yes (Other)
  Sender: FDA-Public Use
  Company Number: JP-ASTELLAS-2022JP012984

PATIENT
  Age: 63 Year
  Sex: Female

DRUGS (1)
  1. MICAFUNGIN SODIUM [Suspect]
     Active Substance: MICAFUNGIN SODIUM
     Indication: Prophylaxis
     Dosage: 150 MG/DAY, UNKNOWN FREQ.
     Route: 041

REACTIONS (3)
  - Liver abscess [Not Recovered/Not Resolved]
  - Candida infection [Not Recovered/Not Resolved]
  - Overdose [Unknown]
